FAERS Safety Report 9114286 (Version 1)
Quarter: 2013Q1

REPORT INFORMATION
  Report Type: Spontaneous
  Country: US (occurrence: US)
  Receive Date: 20130128
  Receipt Date: 20130128
  Transmission Date: 20140127
  Serious: Yes (Hospitalization)
  Sender: FDA-Public Use
  Company Number: PHEH2013US002302

PATIENT
  Sex: Male

DRUGS (1)
  1. TASIGNA [Suspect]
     Dates: start: 201008

REACTIONS (1)
  - Cerebrovascular accident [Unknown]
